FAERS Safety Report 19894361 (Version 1)
Quarter: 2021Q3

REPORT INFORMATION
  Report Type: Spontaneous
  Country: US (occurrence: US)
  Receive Date: 20210929
  Receipt Date: 20210929
  Transmission Date: 20211014
  Serious: Yes (Hospitalization)
  Sender: FDA-Public Use
  Company Number: US-Y-MABS THERAPEUTICS-2118945

PATIENT
  Age: 22 Year
  Sex: Male

DRUGS (12)
  1. GABAPENTIN. [Concomitant]
     Active Substance: GABAPENTIN
     Dates: start: 202108
  2. METHYLPREDNISOLONE. [Concomitant]
     Active Substance: METHYLPREDNISOLONE
     Dates: start: 20210816, end: 20210820
  3. TYLENOL [Concomitant]
     Active Substance: ACETAMINOPHEN
     Dates: start: 20210816, end: 20210820
  4. FAMOTIDINE. [Concomitant]
     Active Substance: FAMOTIDINE
     Dates: start: 20210816, end: 20210820
  5. DILAUDID [Concomitant]
     Active Substance: HYDROMORPHONE HYDROCHLORIDE
     Dates: start: 20210816, end: 20210820
  6. NORCO [Concomitant]
     Active Substance: ACETAMINOPHEN\HYDROCODONE BITARTRATE
     Dates: start: 20210820
  7. KETAMINE HYDROCHLORIDE. [Concomitant]
     Active Substance: KETAMINE HYDROCHLORIDE
     Dates: start: 20210816, end: 20210820
  8. PROTONPUMP INHIBITOR [Concomitant]
  9. CARAFATE [Concomitant]
     Active Substance: SUCRALFATE
  10. DANYELZA [Suspect]
     Active Substance: NAXITAMAB-GQGK
     Indication: NEUROBLASTOMA RECURRENT
     Route: 042
     Dates: start: 20210816
  11. BENADRYL [Concomitant]
     Active Substance: DIPHENHYDRAMINE HYDROCHLORIDE
  12. NORMALE SALINE [Concomitant]

REACTIONS (12)
  - Pain [Recovered/Resolved]
  - Pain [Unknown]
  - Gastritis [Unknown]
  - Fatigue [Unknown]
  - Fall [Unknown]
  - Paraesthesia [Unknown]
  - Dizziness [Unknown]
  - Muscular weakness [Unknown]
  - Pain [Recovered/Resolved]
  - Back pain [Unknown]
  - Hypoaesthesia [Unknown]
  - Anxiety [Unknown]

NARRATIVE: CASE EVENT DATE: 202108
